FAERS Safety Report 5051826-5 (Version None)
Quarter: 2006Q3

REPORT INFORMATION
  Report Type: 
  Country: None (occurrence: None)
  Receive Date: 20060712
  Receipt Date: 20060712
  Transmission Date: 20061208
  Serious: Yes (Hospitalization)
  Sender: FDA-Public Use
  Company Number: None

PATIENT
  Sex: Female
  Weight: 53 kg

DRUGS (1)
  1. CEFTRIAXONE [Suspect]
     Indication: SEPSIS
     Dosage: 2 GRAM EVERY 24 IVPB
     Route: 042
     Dates: start: 20060626, end: 20060706

REACTIONS (1)
  - HOSPITALISATION [None]
